FAERS Safety Report 5404955-8 (Version None)
Quarter: 2007Q3

REPORT INFORMATION
  Report Type: 
  Country: None (occurrence: None)
  Receive Date: 20070801
  Receipt Date: 20070719
  Transmission Date: 20080115
  Serious: Yes (Death)
  Sender: FDA-Public Use
  Company Number: CERZ-11808

PATIENT
  Age: 5 Month
  Sex: Male
  Weight: 3.7 kg

DRUGS (1)
  1. CEREZYME [Suspect]
     Indication: GAUCHER'S DISEASE
     Dates: start: 20070515, end: 20070501

REACTIONS (2)
  - DISEASE PROGRESSION [None]
  - GAUCHER'S DISEASE [None]
